FAERS Safety Report 10692516 (Version 4)
Quarter: 2016Q3

REPORT INFORMATION
  Report Type: Spontaneous
  Country: US (occurrence: US)
  Receive Date: 20150106
  Receipt Date: 20160829
  Transmission Date: 20161109
  Serious: Yes (Disabling, Other)
  Sender: FDA-Public Use
  Company Number: US-PFIZER INC-2014363186

PATIENT
  Age: 46 Year
  Sex: Male
  Weight: 56.7 kg

DRUGS (4)
  1. LATANOPROST. [Suspect]
     Active Substance: LATANOPROST
     Dosage: 2 GTT, 1X/DAY
     Route: 047
  2. LATANOPROST. [Suspect]
     Active Substance: LATANOPROST
     Indication: OPTIC NERVE DISORDER
     Dosage: 2.5 ML, 1X/DAY (ONCE A DAY AT NIGHT BEFORE BED TIME)
  3. LATANOPROST. [Suspect]
     Active Substance: LATANOPROST
     Indication: GLAUCOMA
     Dosage: 1 DROP IN EACH EYE DAILY AT BEFORE BEDTIME
     Route: 047
     Dates: end: 201501
  4. XALATAN [Concomitant]
     Active Substance: LATANOPROST
     Dosage: 2 GTT, 1X/DAY
     Dates: start: 20160106

REACTIONS (6)
  - Glaucoma [Unknown]
  - Drug ineffective [Recovered/Resolved]
  - Intraocular pressure increased [Recovering/Resolving]
  - Eye irritation [Recovered/Resolved]
  - Disease progression [Unknown]
  - Eye pain [Unknown]

NARRATIVE: CASE EVENT DATE: 2014
